FAERS Safety Report 11735178 (Version 1)
Quarter: 2015Q4

REPORT INFORMATION
  Report Type: Spontaneous
  Country: US (occurrence: US)
  Receive Date: 20151113
  Receipt Date: 20151113
  Transmission Date: 20160304
  Serious: No
  Sender: FDA-Public Use
  Company Number: US-GUERBET LLC-1044166

PATIENT
  Age: 67 Year
  Sex: Male
  Weight: 89.4 kg

DRUGS (2)
  1. OXILAN [Suspect]
     Active Substance: IOXILAN
     Indication: CATHETERISATION VENOUS
     Dates: start: 20071015, end: 20071015
  2. VERSED [Concomitant]
     Active Substance: MIDAZOLAM HYDROCHLORIDE
     Dates: start: 20071015, end: 20071015

REACTIONS (3)
  - Vomiting [Recovered/Resolved]
  - Nausea [Recovered/Resolved]
  - Cough [Recovered/Resolved]

NARRATIVE: CASE EVENT DATE: 20071015
